FAERS Safety Report 8873548 (Version 1)
Quarter: 2012Q4

REPORT INFORMATION
  Report Type: 
  Country: US (occurrence: US)
  Receive Date: 20121026
  Receipt Date: 20121026
  Transmission Date: 20130627
  Serious: No
  Sender: FDA-Public Use
  Company Number: US-AMGEN-USASP2012045721

PATIENT
  Age: 63 Year
  Sex: Female
  Weight: 72 kg

DRUGS (15)
  1. ENBREL [Suspect]
     Indication: PRODUCT USED FOR UNKNOWN INDICATION
     Dosage: 50 mg, qwk
     Route: 058
  2. ZOLPIDEM [Concomitant]
     Dosage: 10 mg, UNK
  3. MELOXICAM [Concomitant]
     Dosage: 15 mg, UNK
  4. METHOTREXATE [Concomitant]
     Dosage: 2.5 mg, UNK
  5. HUMIRA [Concomitant]
     Dosage: 40 mg, UNK
  6. CITALOPRAM [Concomitant]
     Dosage: 10 mg, UNK
  7. SIMVASTATIN [Concomitant]
     Dosage: 10 mg, UNK
  8. FOLIC ACID [Concomitant]
     Dosage: 1 mg, UNK
  9. ACTONEL [Concomitant]
     Dosage: 30 mg, UNK
  10. VITAMIN D /00107901/ [Concomitant]
     Dosage: 50000 IU, UNK
  11. PREVACID [Concomitant]
     Dosage: 15 mg, UNK
  12. LEXAPRO [Concomitant]
  13. CALCIUM 600 + D [Concomitant]
     Dosage: 600 mg, UNK
  14. POTASSIUM [Concomitant]
     Dosage: 25 mEq, UNK
  15. TYLENOL /00020001/ [Concomitant]
     Dosage: 500 mg, UNK

REACTIONS (1)
  - Drug ineffective [Unknown]
